FAERS Safety Report 20360244 (Version 1)
Quarter: 2022Q1

REPORT INFORMATION
  Report Type: Spontaneous
  Country: US (occurrence: None)
  Receive Date: 20220121
  Receipt Date: 20220121
  Transmission Date: 20220423
  Serious: No
  Sender: FDA-Public Use
  Company Number: 2022A030975

PATIENT
  Sex: Male

DRUGS (1)
  1. SYMBICORT [Suspect]
     Active Substance: BUDESONIDE\FORMOTEROL FUMARATE DIHYDRATE
     Indication: Chronic obstructive pulmonary disease
     Dosage: 160 MCG/ 4.5 MCG TWO TIMES A DAY
     Route: 055

REACTIONS (4)
  - Amnesia [Unknown]
  - Confusional state [Unknown]
  - Incorrect dose administered by device [Not Recovered/Not Resolved]
  - Off label use [Unknown]
